FAERS Safety Report 22592274 (Version 1)
Quarter: 2023Q2

REPORT INFORMATION
  Report Type: Spontaneous
  Country: CA (occurrence: CA)
  Receive Date: 20230613
  Receipt Date: 20230613
  Transmission Date: 20230721
  Serious: Yes (Other)
  Sender: FDA-Public Use
  Company Number: CA-CELLTRION INC.-2023CA012041

PATIENT

DRUGS (8)
  1. INFLECTRA [Suspect]
     Active Substance: INFLIXIMAB-DYYB
     Indication: Crohn^s disease
     Dosage: 5 MG/KG. INDUCTION WEEK 0
     Route: 042
     Dates: start: 20200807, end: 20200807
  2. INFLECTRA [Suspect]
     Active Substance: INFLIXIMAB-DYYB
     Dosage: 5 MG/KG. INDUCTION WEEK 2
     Route: 042
     Dates: start: 20200820, end: 20200820
  3. INFLECTRA [Suspect]
     Active Substance: INFLIXIMAB-DYYB
     Dosage: 5 MG/KG. INDUCTION WEEK 6
     Route: 042
     Dates: start: 20200918, end: 20200918
  4. INFLECTRA [Suspect]
     Active Substance: INFLIXIMAB-DYYB
     Dosage: 5 MG/KG. REINDUCTION WEEK 0
     Route: 042
     Dates: start: 20210105, end: 20210105
  5. INFLECTRA [Suspect]
     Active Substance: INFLIXIMAB-DYYB
     Dosage: 5 MG/KG. REINDUCTION WEEK 2
     Route: 042
     Dates: start: 20210119, end: 20210119
  6. INFLECTRA [Suspect]
     Active Substance: INFLIXIMAB-DYYB
     Dosage: 5 MG/KG. WEEK 6 RE- INDUCTION
     Route: 042
     Dates: start: 20210218, end: 20210218
  7. INFLECTRA [Suspect]
     Active Substance: INFLIXIMAB-DYYB
     Dosage: 5 MG/KG, EVERY 8 WEEKS
     Route: 042
     Dates: start: 20210416, end: 20210819
  8. INFLECTRA [Suspect]
     Active Substance: INFLIXIMAB-DYYB
     Dosage: 5 MG/KG, EVERY 4 WEEKS
     Route: 042
     Dates: start: 20210428, end: 20230518

REACTIONS (2)
  - Salmonellosis [Unknown]
  - Off label use [Unknown]

NARRATIVE: CASE EVENT DATE: 20210105
